FAERS Safety Report 9222966 (Version 2)
Quarter: 2013Q2

REPORT INFORMATION
  Report Type: Report from Study
  Country: NL (occurrence: NL)
  Receive Date: 20130410
  Receipt Date: 20130422
  Transmission Date: 20140414
  Serious: Yes (Death, Life-Threatening, Other)
  Sender: FDA-Public Use
  Company Number: NL-ROCHE-1210380

PATIENT
  Sex: 0

DRUGS (2)
  1. ALTEPLASE [Suspect]
     Indication: MYOCARDIAL INFARCTION
     Dosage: 100 MG OR 50 MG
     Route: 042
  2. STREPTOKINASE [Concomitant]
     Indication: MYOCARDIAL INFARCTION
     Route: 065

REACTIONS (6)
  - Death [Fatal]
  - Ventricular fibrillation [Recovered/Resolved]
  - Ventricular tachycardia [Unknown]
  - Haemorrhage [Unknown]
  - Haemorrhage [Unknown]
  - Hypotension [Unknown]
